FAERS Safety Report 6213802-6 (Version None)
Quarter: 2009Q2

REPORT INFORMATION
  Report Type: 
  Country: None (occurrence: None)
  Receive Date: 20090602
  Receipt Date: 20090522
  Transmission Date: 20091009
  Serious: Yes (Other)
  Sender: FDA-Public Use
  Company Number: 2009AP002138

PATIENT
  Age: 55 Year
  Sex: Female

DRUGS (3)
  1. CIPROFLOXACIN [Suspect]
     Dosage: 500 MG, TIW; PO
     Route: 048
     Dates: start: 20090506, end: 20090517
  2. ANTIHYPERTENSIVES [Concomitant]
  3. DRUG USSED IN DIABETES [Concomitant]

REACTIONS (6)
  - BLISTER [None]
  - PAIN OF SKIN [None]
  - SKIN EXFOLIATION [None]
  - SKIN REACTION [None]
  - SKIN SWELLING [None]
  - SUNBURN [None]
